FAERS Safety Report 26021758 (Version 1)
Quarter: 2025Q4

REPORT INFORMATION
  Report Type: Report from Study
  Country: CA (occurrence: CA)
  Receive Date: 20251110
  Receipt Date: 20251110
  Transmission Date: 20260117
  Serious: Yes (Other)
  Sender: ROCHE
  Company Number: CA-ROCHE-10000429169

PATIENT
  Sex: Male

DRUGS (15)
  1. RITUXAN [Suspect]
     Active Substance: RITUXIMAB
     Indication: Anti-neutrophil cytoplasmic antibody positive vasculitis
     Route: 058
     Dates: start: 20151113
  2. IMURAN [Concomitant]
     Active Substance: AZATHIOPRINE
  3. ACTONEL [Concomitant]
     Active Substance: RISEDRONATE SODIUM
  4. AZATHIOPRINE [Concomitant]
     Active Substance: AZATHIOPRINE
     Indication: Vasculitis
  5. BETAMETHASONE [Concomitant]
     Active Substance: BETAMETHASONE
     Indication: Eczema
  6. Clobetasol Propion [Concomitant]
     Indication: Pruritus
  7. PHOSPHOCREATINE [Concomitant]
     Active Substance: PHOSPHOCREATINE
  8. METOPROLOL [Concomitant]
     Active Substance: METOPROLOL
  9. OMEPRAZOLE [Concomitant]
     Active Substance: OMEPRAZOLE
  10. PIMECROLIMUS [Concomitant]
     Active Substance: PIMECROLIMUS
     Indication: Eczema
  11. PREDNISONE [Concomitant]
     Active Substance: PREDNISONE
     Indication: Vasculitis
  12. Rivaroxaban - Xarelto [Concomitant]
     Indication: Anticoagulant therapy
  13. RISEDRONATE SODIUM [Concomitant]
     Active Substance: RISEDRONATE SODIUM
  14. HERBALS\TURMERIC [Concomitant]
     Active Substance: HERBALS\TURMERIC
  15. VITAMIN D3 [Concomitant]
     Active Substance: CHOLECALCIFEROL

REACTIONS (2)
  - Type 2 diabetes mellitus [Unknown]
  - Hypertension [Unknown]
